FAERS Safety Report 9855540 (Version 1)
Quarter: 2014Q1

REPORT INFORMATION
  Report Type: Spontaneous
  Country: PH (occurrence: PH)
  Receive Date: 20140130
  Receipt Date: 20140130
  Transmission Date: 20141002
  Serious: Yes (Other)
  Sender: FDA-Public Use
  Company Number: PH-009507513-1401PHL012491

PATIENT
  Sex: Female

DRUGS (1)
  1. JANUMET [Suspect]
     Dosage: ONE TABLET ONCE A DAY
     Route: 048
     Dates: start: 20121031

REACTIONS (1)
  - Intestinal mass [Unknown]
